FAERS Safety Report 7383105-5 (Version None)
Quarter: 2011Q1

REPORT INFORMATION
  Report Type: 
  Country: None (occurrence: None)
  Receive Date: 20110330
  Receipt Date: 20110324
  Transmission Date: 20110831
  Serious: Yes (Death, Other)
  Sender: FDA-Public Use
  Company Number: JP-ASTELLAS-2011JP002088

PATIENT
  Age: 42 Year
  Sex: Male

DRUGS (5)
  1. PROGRAF [Suspect]
     Indication: ACUTE GRAFT VERSUS HOST DISEASE
     Dosage: UNK
     Route: 041
  2. IMMUNE GLOBULIN NOS [Concomitant]
     Route: 065
  3. METHYLPREDNISOLONE ACETATE [Concomitant]
     Indication: ACUTE GRAFT VERSUS HOST DISEASE
     Dosage: 1 MG/KG, UNKNOWN/D
     Route: 065
  4. MYCOPHENOLATE MOFETIL [Concomitant]
     Route: 065
  5. STEROID [Concomitant]
     Route: 065

REACTIONS (3)
  - ENDOCARDITIS BACTERIAL [None]
  - VIRAL HAEMORRHAGIC CYSTITIS [None]
  - CYTOMEGALOVIRUS VIRAEMIA [None]
